FAERS Safety Report 9242176 (Version 1)
Quarter: 2013Q2

REPORT INFORMATION
  Report Type: Spontaneous
  Country: US (occurrence: US)
  Receive Date: 20130419
  Receipt Date: 20130419
  Transmission Date: 20140414
  Serious: Yes (Hospitalization)
  Sender: FDA-Public Use
  Company Number: US-ROCHE-1069729

PATIENT
  Age: 45 Year
  Sex: Female

DRUGS (2)
  1. XOLAIR [Suspect]
     Indication: ASTHMA
     Dosage: LAST DOSE: 24/APR/2012
     Route: 058
     Dates: start: 201111
  2. XOLAIR [Suspect]
     Indication: URTICARIA

REACTIONS (3)
  - Drug ineffective [Unknown]
  - Anaphylactic reaction [Recovered/Resolved]
  - Autoimmune thyroiditis [Not Recovered/Not Resolved]
